FAERS Safety Report 4847095-9 (Version None)
Quarter: 2005Q4

REPORT INFORMATION
  Report Type: 
  Country: None (occurrence: None)
  Receive Date: 20051205
  Receipt Date: 20051123
  Transmission Date: 20060501
  Serious: Yes (Death, Other)
  Sender: FDA-Public Use
  Company Number: 2005-11-0775

PATIENT
  Age: 65 Year
  Sex: Male

DRUGS (1)
  1. TEMODAL [Suspect]
     Indication: GLIOBLASTOMA MULTIFORME
     Dosage: 75 MG/M2 QD ORAL
     Route: 048
     Dates: start: 20051011, end: 20051101

REACTIONS (4)
  - ABSCESS [None]
  - BACTERIAL INFECTION [None]
  - LUNG INFECTION [None]
  - PNEUMOCYSTIS JIROVECI INFECTION [None]
